FAERS Safety Report 4989884-6 (Version None)
Quarter: 2006Q2

REPORT INFORMATION
  Report Type: 
  Country: None (occurrence: None)
  Receive Date: 20060428
  Receipt Date: 20060419
  Transmission Date: 20061013
  Serious: Yes (Hospitalization)
  Sender: FDA-Public Use
  Company Number: 2006053493

PATIENT
  Age: 12 Month
  Sex: Female

DRUGS (7)
  1. PHENYTOIN [Suspect]
     Indication: CONVULSION
  2. QUININE SULFATE [Suspect]
     Indication: PLASMODIUM FALCIPARUM INFECTION
     Dosage: INTRAVENOUS
     Route: 042
  3. VALPROATE SODIUM [Concomitant]
  4. TOPIRAMATE [Concomitant]
  5. PARALDEHYDE (PARALDEHYDE) [Concomitant]
  6. PYRIMETHAMINE TAB [Concomitant]
  7. SULFADOXINE (SULFADOXINE) [Concomitant]

REACTIONS (10)
  - DEPRESSED LEVEL OF CONSCIOUSNESS [None]
  - DISEASE RECURRENCE [None]
  - DRUG EFFECT DECREASED [None]
  - DRUG INTERACTION [None]
  - GRAND MAL CONVULSION [None]
  - PLASMODIUM FALCIPARUM INFECTION [None]
  - PYREXIA [None]
  - STATUS EPILEPTICUS [None]
  - TACHYCARDIA [None]
  - TACHYPNOEA [None]
